FAERS Safety Report 23309609 (Version 2)
Quarter: 2024Q1

REPORT INFORMATION
  Report Type: Other
  Country: CA (occurrence: CA)
  Receive Date: 20231218
  Receipt Date: 20240122
  Transmission Date: 20240409
  Serious: Yes (Other)
  Sender: FDA-Public Use
  Company Number: CA-APOTEX-2023AP017868

PATIENT
  Age: 52 Year
  Sex: Female

DRUGS (12)
  1. CETIRIZINE [Suspect]
     Active Substance: CETIRIZINE HYDROCHLORIDE
     Indication: Chronic spontaneous urticaria
     Dosage: UNK
     Route: 065
  2. PREDNISONE [Suspect]
     Active Substance: PREDNISONE
     Indication: Chronic spontaneous urticaria
     Dosage: 30 MILLIGRAM, QD
     Route: 048
  3. MOMETASONE [Suspect]
     Active Substance: MOMETASONE
     Indication: Chronic spontaneous urticaria
     Dosage: 50 MICROGRAM, BID
     Route: 045
  4. LEVOTHYROXINE [Suspect]
     Active Substance: LEVOTHYROXINE\LEVOTHYROXINE SODIUM
     Indication: Product used for unknown indication
     Dosage: 50 MICROGRAM, QD
     Route: 048
  5. AMLODIPINE [Suspect]
     Active Substance: AMLODIPINE BESYLATE
     Indication: Chronic spontaneous urticaria
     Dosage: 5 MILLIGRAM, QD
     Route: 048
  6. HYDROXYZINE [Suspect]
     Active Substance: HYDROXYZINE HYDROCHLORIDE
     Indication: Chronic spontaneous urticaria
     Dosage: UNK
     Route: 065
  7. CEFPROZIL [Suspect]
     Active Substance: CEFPROZIL
     Indication: Product used for unknown indication
     Dosage: 250 MILLIGRAM, BID
     Route: 048
  8. PANTOPRAZOLE [Suspect]
     Active Substance: PANTOPRAZOLE
     Indication: Chronic spontaneous urticaria
     Dosage: 40 MILLIGRAM, QD
     Route: 048
  9. BILASTINE [Suspect]
     Active Substance: BILASTINE
     Indication: Chronic spontaneous urticaria
     Dosage: UNK
     Route: 065
  10. RUPATADINE FUMARATE [Suspect]
     Active Substance: RUPATADINE FUMARATE
     Indication: Chronic spontaneous urticaria
     Dosage: 10 MILLIGRAM, BID
     Route: 048
  11. AMLODIPINE BESYLATE [Suspect]
     Active Substance: AMLODIPINE BESYLATE
     Indication: Chronic spontaneous urticaria
     Dosage: 5 MILLIGRAM, QD
     Route: 048
  12. LEVOTHYROXINE [Concomitant]
     Active Substance: LEVOTHYROXINE\LEVOTHYROXINE SODIUM
     Indication: Product used for unknown indication
     Dosage: 50 MICROGRAM, QD
     Route: 048

REACTIONS (6)
  - Mouth breathing [Unknown]
  - Choking [Unknown]
  - Rhinitis allergic [Unknown]
  - Wheezing [Unknown]
  - Snoring [Unknown]
  - Hypersensitivity [Unknown]
